FAERS Safety Report 23116573 (Version 1)
Quarter: 2023Q4

REPORT INFORMATION
  Report Type: Spontaneous
  Country: US (occurrence: US)
  Receive Date: 20231027
  Receipt Date: 20231027
  Transmission Date: 20240110
  Serious: Yes (Other)
  Sender: FDA-Public Use
  Company Number: US-BRISTOL-MYERS SQUIBB COMPANY-2023-151819

PATIENT
  Age: 73 Year
  Sex: Male

DRUGS (1)
  1. REVLIMID [Suspect]
     Active Substance: LENALIDOMIDE
     Indication: Non-Hodgkin^s lymphoma
     Dosage: QD X 21 DAYS THEN 7 DAYS OFF
     Route: 048
     Dates: start: 20210902

REACTIONS (3)
  - Cytomegalovirus infection [Unknown]
  - Escherichia urinary tract infection [Unknown]
  - Cystitis [Unknown]
